FAERS Safety Report 18218444 (Version 2)
Quarter: 2025Q4

REPORT INFORMATION
  Report Type: Spontaneous
  Country: US (occurrence: US)
  Receive Date: 20200901
  Receipt Date: 20251113
  Transmission Date: 20260117
  Serious: Yes (Other)
  Sender: PURDUE
  Company Number: US-PURDUE-USA-2020-0163550

PATIENT

DRUGS (28)
  1. OXYCODONE HYDROCHLORIDE [Suspect]
     Active Substance: OXYCODONE HYDROCHLORIDE
     Indication: Product used for unknown indication
     Dosage: 15 MILLIGRAM
     Route: 048
  2. OXYCODONE HYDROCHLORIDE [Suspect]
     Active Substance: OXYCODONE HYDROCHLORIDE
     Dosage: 10 MILLIGRAM
     Route: 048
  3. OXYCODONE HYDROCHLORIDE [Suspect]
     Active Substance: OXYCODONE HYDROCHLORIDE
     Dosage: 15 MILLIGRAM, (TAKE ONE TABLET BY MOUTH EVERY 4 TO 6 HOURS AS NEEDED)
     Route: 048
  4. OXYCODONE HYDROCHLORIDE [Suspect]
     Active Substance: OXYCODONE HYDROCHLORIDE
     Dosage: 15 MILLIGRAM, TID (TAKE ONE TABLET)
     Route: 048
  5. OXYCODONE HYDROCHLORIDE [Suspect]
     Active Substance: OXYCODONE HYDROCHLORIDE
     Dosage: 10 MILLIGRAM, (TAKE TWO TABLETS BY MOUTH ONCE DAILY)
     Route: 048
  6. OXYCODONE HYDROCHLORIDE [Interacting]
     Active Substance: OXYCODONE HYDROCHLORIDE
     Indication: Pain
     Dosage: 15 MG, UNK
     Route: 048
  7. OXYCODONE HYDROCHLORIDE [Interacting]
     Active Substance: OXYCODONE HYDROCHLORIDE
     Dosage: 90 PILLS OF OXY-15S PER MONTH
     Route: 048
  8. ACETAMINOPHEN\OXYCODONE HYDROCHLORIDE [Interacting]
     Active Substance: ACETAMINOPHEN\OXYCODONE HYDROCHLORIDE
     Indication: Pain
     Dosage: 5/325 MG, UNK
     Route: 048
  9. HYDROCODONE BITARTRATE AND ACETAMINOPHEN [Interacting]
     Active Substance: ACETAMINOPHEN\HYDROCODONE BITARTRATE
     Indication: Pain
     Dosage: 10/325 MG, UNK
     Route: 048
  10. HYDROCODONE BITARTRATE AND ACETAMINOPHEN [Interacting]
     Active Substance: ACETAMINOPHEN\HYDROCODONE BITARTRATE
     Dosage: 5/325 UNK, UNK
     Route: 048
  11. HYDROCODONE BITARTRATE AND ACETAMINOPHEN [Interacting]
     Active Substance: ACETAMINOPHEN\HYDROCODONE BITARTRATE
     Dosage: 10/325 MG, (TAKE ONE TABLET BY MOUTH EVERY 4 TO 6 HOURS AS NEEDED)
     Route: 048
  12. HYDROCODONE BITARTRATE AND ACETAMINOPHEN [Interacting]
     Active Substance: ACETAMINOPHEN\HYDROCODONE BITARTRATE
     Dosage: 10/325 MG, Q6H (TAKE ONE TABLET BY MOUTH)
     Route: 048
  13. HYDROCODONE BITARTRATE AND ACETAMINOPHEN [Interacting]
     Active Substance: ACETAMINOPHEN\HYDROCODONE BITARTRATE
     Dosage: 5/325 MG, (TAKE ONE TABLET BY MOUTH EVERY 4 TO 6 HOURS AS NEEDED)
     Route: 048
  14. HYDROCODONE BITARTRATE AND ACETAMINOPHEN [Interacting]
     Active Substance: ACETAMINOPHEN\HYDROCODONE BITARTRATE
     Dosage: 5/325 MG, Q6H (TAKE ONE TABLET BY MOUTH)
     Route: 048
  15. TRAMADOL [Suspect]
     Active Substance: TRAMADOL
     Indication: Back pain
     Dosage: 50 MG, UNK
     Route: 048
  16. TRAMADOL [Suspect]
     Active Substance: TRAMADOL
     Dosage: 50 MILLIGRAM, Q6H (ONE TABLET BY MOUTH)
     Route: 048
  17. TRAMADOL [Suspect]
     Active Substance: TRAMADOL
     Dosage: 50 MILLIGRAM, (ONE TABLET BY MOUTH EVERY 4 TO 6 HOURS)
     Route: 048
  18. TRAMADOL [Suspect]
     Active Substance: TRAMADOL
     Dosage: 50 MILLIGRAM, (ONE TABLET BY MOUTH EVERY 4 TO 6 HOURS AS NEEDED)
     Route: 048
  19. TRAMADOL [Suspect]
     Active Substance: TRAMADOL
     Dosage: 50 MILLIGRAM, BID (ONE TABLET BY MOUTH)
     Route: 048
  20. TRAMADOL [Suspect]
     Active Substance: TRAMADOL
     Dosage: 50 MILLIGRAM, Q6H (TAKE ONE TABLET BY MOUTH)
     Route: 048
  21. TRAMADOL [Suspect]
     Active Substance: TRAMADOL
     Dosage: 50 MILLIGRAM (TAKE ONE TABLET BY MOUTH BEDTIME AS NEEDED)
     Route: 048
  22. TEMAZEPAM [Interacting]
     Active Substance: TEMAZEPAM
     Indication: Product used for unknown indication
     Dosage: 15 MG, UNK
     Route: 048
  23. TEMAZEPAM [Interacting]
     Active Substance: TEMAZEPAM
     Dosage: 30 MILLIGRAM, (TAKE ONE CAPSULE BY MOUTH ONCE DAILY AT BED TIME)
     Route: 048
  24. CIALIS [Concomitant]
     Active Substance: TADALAFIL
     Indication: Product used for unknown indication
     Dosage: 20 MG, UNK
     Route: 048
  25. VIAGRA [Concomitant]
     Active Substance: SILDENAFIL CITRATE
     Indication: Product used for unknown indication
     Dosage: 100 MG, UNK
     Route: 048
  26. VIAGRA [Concomitant]
     Active Substance: SILDENAFIL CITRATE
     Dosage: 100 MILLIGRAM, (USE AS DIRECTED)
     Route: 048
  27. AMBIEN [Concomitant]
     Active Substance: ZOLPIDEM TARTRATE
     Indication: Product used for unknown indication
     Dosage: 10 MG, UNK
     Route: 048
  28. TIZANIDINE [Concomitant]
     Active Substance: TIZANIDINE
     Indication: Product used for unknown indication
     Dosage: UNK MG, UNK
     Route: 048

REACTIONS (19)
  - Cardiac disorder [Unknown]
  - Angina pectoris [Unknown]
  - Hepatitis C [Unknown]
  - Hepatic cirrhosis [Unknown]
  - Drug dependence [Unknown]
  - Mental impairment [Unknown]
  - Drug abuse [Unknown]
  - Insomnia [Unknown]
  - Arterial disorder [Unknown]
  - Pain in extremity [Unknown]
  - Spinal pain [Unknown]
  - Blood pressure increased [Unknown]
  - Intervertebral disc degeneration [Unknown]
  - Arthralgia [Unknown]
  - Drug interaction [Unknown]
  - Malaise [Unknown]
  - Constipation [Unknown]
  - General physical health deterioration [Unknown]
  - Mental disorder [Unknown]
